FAERS Safety Report 6354160-6 (Version None)
Quarter: 2009Q3

REPORT INFORMATION
  Report Type: 
  Country: None (occurrence: None)
  Receive Date: 20090914
  Receipt Date: 20090903
  Transmission Date: 20100115
  Serious: Yes (Other)
  Sender: FDA-Public Use
  Company Number: US-ROCHE-635574

PATIENT
  Sex: Male
  Weight: 77.1 kg

DRUGS (2)
  1. CAPECITABINE [Suspect]
     Indication: METASTASES TO RECTUM
     Dosage: TOOK FOUR CYCLES OF CAPECITABINE
     Route: 048
     Dates: start: 20090305
  2. ELOXATIN [Suspect]
     Indication: DRUG USE FOR UNKNOWN INDICATION
     Dosage: 4 CYCLES
     Route: 042

REACTIONS (3)
  - MALIGNANT NEOPLASM PROGRESSION [None]
  - NEUROPATHY PERIPHERAL [None]
  - PALMAR-PLANTAR ERYTHRODYSAESTHESIA SYNDROME [None]
